FAERS Safety Report 23771676 (Version 1)
Quarter: 2024Q2

REPORT INFORMATION
  Report Type: Spontaneous
  Country: CN (occurrence: CN)
  Receive Date: 20240423
  Receipt Date: 20240423
  Transmission Date: 20240716
  Serious: Yes (Hospitalization, Other)
  Sender: FDA-Public Use
  Company Number: CN-AUROBINDO-AUR-APL-2024-017843

PATIENT
  Age: 64 Year
  Sex: Male

DRUGS (4)
  1. AMLODIPINE BESYLATE [Suspect]
     Active Substance: AMLODIPINE BESYLATE
     Indication: Hypertension
     Dosage: 5 MILLIGRAM, ONCE A DAY
     Route: 065
  2. AMLODIPINE BESYLATE [Suspect]
     Active Substance: AMLODIPINE BESYLATE
     Dosage: 5 MILLIGRAM, TWO TIMES A DAY
     Route: 065
  3. CLONIDINE [Suspect]
     Active Substance: CLONIDINE
     Indication: Hypertension
     Dosage: 75 MICROGRAM, 3 TIMES A DAY
     Route: 065
  4. CLONIDINE [Suspect]
     Active Substance: CLONIDINE
     Dosage: 75 MICROGRAM, FOUR TIMES/DAY
     Route: 065

REACTIONS (1)
  - Drug ineffective [Unknown]
